FAERS Safety Report 5410098-X (Version None)
Quarter: 2007Q3

REPORT INFORMATION
  Report Type: 
  Country: None (occurrence: None)
  Receive Date: 20070713
  Receipt Date: 20070412
  Transmission Date: 20080115
  Serious: No
  Sender: FDA-Public Use
  Company Number: 2007SP001336

PATIENT
  Age: 77 Year
  Sex: Female
  Weight: 148.7798 kg

DRUGS (18)
  1. LUNESTA [Suspect]
     Indication: INSOMNIA
     Dosage: 3 MG;ORAL
     Route: 048
     Dates: start: 20070301, end: 20070101
  2. LUNESTA [Suspect]
     Indication: INSOMNIA
     Dosage: 3 MG;ORAL
     Route: 048
     Dates: start: 20070401, end: 20070401
  3. DOXAZOSIN MESYLATE [Concomitant]
  4. LASIX [Concomitant]
  5. WARFARIN [Concomitant]
  6. ATENOLOL [Concomitant]
  7. AMLODIPINE BESYLATE [Concomitant]
  8. LOVASTATIN [Concomitant]
  9. GLIMEPIRIDE [Concomitant]
  10. NIASPAN [Concomitant]
  11. QUININE SULFATE [Concomitant]
  12. VITAMIN D [Concomitant]
  13. VITAMIN E [Concomitant]
  14. POTASSIUM CHLORIDE [Concomitant]
  15. CALCIUM CHLORIDE [Concomitant]
  16. VITAMIN CAP [Concomitant]
  17. MAGNESIUM SULFATE [Concomitant]
  18. ZINC [Concomitant]

REACTIONS (2)
  - DYSGEUSIA [None]
  - MIDDLE INSOMNIA [None]
